FAERS Safety Report 4656387-8 (Version None)
Quarter: 2005Q2

REPORT INFORMATION
  Report Type: 
  Country: None (occurrence: None)
  Receive Date: 20050509
  Receipt Date: 20050225
  Transmission Date: 20051028
  Serious: Yes (Death, Hospitalization)
  Sender: FDA-Public Use
  Company Number: US-MERCK-0503USA00101

PATIENT
  Age: 83 Year
  Sex: Female

DRUGS (10)
  1. HYDROCHLOROTHIAZIDE [Concomitant]
     Route: 065
  2. PHENAZOPYRIDINE HYDROCHLORIDE [Concomitant]
     Route: 065
  3. DILTIAZEM MALATE [Concomitant]
     Route: 065
  4. VIOXX [Suspect]
     Indication: NECK PAIN
     Route: 048
     Dates: start: 20020908, end: 20021224
  5. VIOXX [Suspect]
     Indication: OSTEOARTHRITIS
     Route: 048
     Dates: start: 20020908, end: 20021224
  6. PLAVIX [Concomitant]
     Indication: CEREBROVASCULAR ACCIDENT
     Route: 065
  7. MECLIZINE [Concomitant]
     Route: 065
  8. CODEINE [Concomitant]
     Route: 065
  9. DETROL [Concomitant]
     Route: 065
  10. NAPROXEN [Concomitant]
     Indication: PAIN
     Route: 065

REACTIONS (18)
  - ACUTE MYOCARDIAL INFARCTION [None]
  - ANAEMIA [None]
  - ARRHYTHMIA [None]
  - CARDIAC FAILURE CONGESTIVE [None]
  - CEREBROVASCULAR ACCIDENT [None]
  - CORONARY ARTERY ATHEROSCLEROSIS [None]
  - CORONARY ARTERY DISEASE [None]
  - CYSTITIS [None]
  - DECUBITUS ULCER [None]
  - DEMENTIA ALZHEIMER'S TYPE [None]
  - DUODENAL ULCER [None]
  - ECCHYMOSIS [None]
  - HEADACHE [None]
  - MYOCARDIAL INFARCTION [None]
  - OEDEMA PERIPHERAL [None]
  - PNEUMONIA [None]
  - TRANSIENT ISCHAEMIC ATTACK [None]
  - VENTRICULAR TACHYCARDIA [None]
